FAERS Safety Report 5012284-X (Version None)
Quarter: 2006Q2

REPORT INFORMATION
  Report Type: 
  Country: None (occurrence: None)
  Receive Date: 20060524
  Receipt Date: 20060520
  Transmission Date: 20061013
  Serious: Yes (Other)
  Sender: FDA-Public Use
  Company Number: 219703

PATIENT

DRUGS (1)
  1. AVASTIN [Suspect]

REACTIONS (2)
  - HOT FLUSH [None]
  - HYPERHIDROSIS [None]
